FAERS Safety Report 13488941 (Version 1)
Quarter: 2017Q2

REPORT INFORMATION
  Report Type: Spontaneous
  Country: US (occurrence: US)
  Receive Date: 20170426
  Receipt Date: 20170426
  Transmission Date: 20170830
  Serious: Yes (Other)
  Sender: FDA-Public Use
  Company Number: None

PATIENT
  Age: 53 Year
  Sex: Female
  Weight: 54 kg

DRUGS (3)
  1. CIPRO [Suspect]
     Active Substance: CIPROFLOXACIN HYDROCHLORIDE
     Indication: SKIN DISORDER
     Dosage: ?          QUANTITY:14 TABLET(S);?
     Route: 048
     Dates: start: 20160102, end: 20160108
  2. LEXAPRO [Concomitant]
     Active Substance: ESCITALOPRAM OXALATE
  3. CIPRO [Suspect]
     Active Substance: CIPROFLOXACIN HYDROCHLORIDE
     Indication: URINARY TRACT INFECTION
     Dosage: ?          QUANTITY:14 TABLET(S);?
     Route: 048
     Dates: start: 20160102, end: 20160108

REACTIONS (8)
  - Pain [None]
  - Burning sensation [None]
  - Tendon pain [None]
  - Balance disorder [None]
  - Tinnitus [None]
  - Muscular weakness [None]
  - Muscle atrophy [None]
  - Arthralgia [None]

NARRATIVE: CASE EVENT DATE: 20170301
